FAERS Safety Report 5863239 (Version 6)
Quarter: 2014Q1

REPORT INFORMATION
  Report Type: Spontaneous
  Country: US (occurrence: US)
  Receive Date: 20050809
  Receipt Date: 20140304
  Transmission Date: 20141002
  Serious: Yes (Other)
  Sender: FDA-Public Use
  Company Number: 2005BI014098

PATIENT
  Age: 53 Year
  Sex: Female

DRUGS (4)
  1. AVONEX [Suspect]
     Indication: MULTIPLE SCLEROSIS
     Route: 030
     Dates: start: 1998, end: 20050104
  2. AVONEX [Suspect]
     Indication: MULTIPLE SCLEROSIS
     Route: 030
     Dates: start: 20050716, end: 20080401
  3. AVONEX [Suspect]
     Indication: MULTIPLE SCLEROSIS
     Route: 030
     Dates: end: 20080601
  4. AVONEX [Suspect]
     Indication: MULTIPLE SCLEROSIS
     Route: 030
     Dates: start: 20080603

REACTIONS (6)
  - Malignant melanoma [Recovered/Resolved]
  - Lentigo maligna [Recovered/Resolved]
  - Lymphadenectomy [Recovered/Resolved]
  - Thyroid cyst [Not Recovered/Not Resolved]
  - Joint swelling [Not Recovered/Not Resolved]
  - Thrombocytopenia [Unknown]
